FAERS Safety Report 5368946-8 (Version None)
Quarter: 2007Q2

REPORT INFORMATION
  Report Type: 
  Country: None (occurrence: None)
  Receive Date: 20070625
  Receipt Date: 20061127
  Transmission Date: 20071010
  Serious: No
  Sender: FDA-Public Use
  Company Number: US-ASTRAZENECA-2006UW26415

PATIENT
  Age: 61 Year
  Sex: Female
  Weight: 92.5 kg

DRUGS (4)
  1. CRESTOR [Suspect]
     Indication: HYPERCHOLESTEROLAEMIA
     Route: 048
     Dates: start: 20061120
  2. ZOLOFT [Concomitant]
  3. BLOOD PRESSURE MEDICINE [Concomitant]
     Indication: HYPERTENSION
     Route: 048
  4. ARIMIDEX [Concomitant]
     Indication: BREAST CANCER
     Route: 048

REACTIONS (2)
  - HOT FLUSH [None]
  - URINARY TRACT DISORDER [None]
